FAERS Safety Report 9512301 (Version 1)
Quarter: 2013Q3

REPORT INFORMATION
  Report Type: Spontaneous
  Country: US (occurrence: US)
  Receive Date: 20130910
  Receipt Date: 20130910
  Transmission Date: 20140515
  Serious: Yes (Other)
  Sender: FDA-Public Use
  Company Number: -SAAVPROD-BMS16899759

PATIENT
  Sex: 0

DRUGS (2)
  1. AVAPRO [Suspect]
  2. MULTAQ [Concomitant]

REACTIONS (1)
  - Adverse event [Unknown]
